FAERS Safety Report 22622091 (Version 2)
Quarter: 2023Q2

REPORT INFORMATION
  Report Type: Spontaneous
  Country: CN (occurrence: CN)
  Receive Date: 20230620
  Receipt Date: 20230622
  Transmission Date: 20230722
  Serious: Yes (Other)
  Sender: FDA-Public Use
  Company Number: CN-PFIZER INC-PV202300106810

PATIENT
  Age: 16 Year
  Sex: Male
  Weight: 50.2 kg

DRUGS (7)
  1. MEDROL [Suspect]
     Active Substance: METHYLPREDNISOLONE
     Indication: Nephrotic syndrome
     Dosage: 12 MG, 1X/DAY
     Route: 048
     Dates: start: 20141201
  2. MEDROL [Suspect]
     Active Substance: METHYLPREDNISOLONE
     Dosage: 12MG QM
     Dates: start: 20210429, end: 20210712
  3. MEDROL [Suspect]
     Active Substance: METHYLPREDNISOLONE
     Dosage: 12MG QOD
     Dates: start: 20210713, end: 20210809
  4. MEDROL [Suspect]
     Active Substance: METHYLPREDNISOLONE
     Dosage: 8MG QOD
     Dates: start: 20210810, end: 20210919
  5. MEDROL [Suspect]
     Active Substance: METHYLPREDNISOLONE
     Dosage: 6MG QOD
     Dates: start: 20210920, end: 202110
  6. MEDROL [Suspect]
     Active Substance: METHYLPREDNISOLONE
     Dosage: 4MG QOD
     Dates: start: 20211010, end: 20220114
  7. MEDROL [Suspect]
     Active Substance: METHYLPREDNISOLONE
     Dosage: 2MG QOD
     Dates: start: 20220115, end: 20220528

REACTIONS (1)
  - Growth retardation [Unknown]

NARRATIVE: CASE EVENT DATE: 20230413
